FAERS Safety Report 6274679-6 (Version None)
Quarter: 2009Q3

REPORT INFORMATION
  Report Type: 
  Country: None (occurrence: None)
  Receive Date: 20090721
  Receipt Date: 20071231
  Transmission Date: 20100115
  Serious: Yes (Hospitalization, Other)
  Sender: FDA-Public Use
  Company Number: US-ASTRAZENECA-2007UW11002

PATIENT
  Age: 25 Year
  Sex: Male

DRUGS (4)
  1. SEROQUEL [Suspect]
     Indication: SLEEP DISORDER
     Route: 048
     Dates: start: 20010101, end: 20050101
  2. REMERON [Concomitant]
     Dates: start: 20030127
  3. PAXIL [Concomitant]
     Dates: start: 20030127
  4. XANAX [Concomitant]
     Dates: start: 20030127

REACTIONS (4)
  - DIABETIC KETOACIDOSIS [None]
  - DIABETIC NEUROPATHY [None]
  - NEUROPATHY PERIPHERAL [None]
  - TYPE 1 DIABETES MELLITUS [None]
